FAERS Safety Report 8001109-6 (Version None)
Quarter: 2011Q4

REPORT INFORMATION
  Report Type: 
  Country: None (occurrence: None)
  Receive Date: 20111222
  Receipt Date: 20111219
  Transmission Date: 20120403
  Serious: Yes (Death)
  Sender: FDA-Public Use
  Company Number: US-PFIZER INC-2011308746

PATIENT
  Age: 62 Year
  Sex: Male

DRUGS (4)
  1. CARVEDILOL [Suspect]
     Route: 048
  2. NALTREXONE [Suspect]
     Route: 048
  3. VENLAFAXINE HCL [Suspect]
     Route: 048
  4. COLCHICINE [Suspect]
     Route: 048

REACTIONS (1)
  - COMPLETED SUICIDE [None]
